FAERS Safety Report 12989734 (Version 1)
Quarter: 2016Q4

REPORT INFORMATION
  Report Type: Report from Study
  Country: US (occurrence: US)
  Receive Date: 20161201
  Receipt Date: 20161201
  Transmission Date: 20170207
  Serious: Yes (Death, Other)
  Sender: FDA-Public Use
  Company Number: US-GILEAD-2016-0245242

PATIENT
  Age: 73 Year
  Sex: Male

DRUGS (15)
  1. AMBRISENTAN [Suspect]
     Active Substance: AMBRISENTAN
     Indication: PULMONARY ARTERIAL HYPERTENSION
     Dosage: 5 MG, QD
     Route: 065
     Dates: start: 20160915
  2. METOLAZONE. [Concomitant]
     Active Substance: METOLAZONE
  3. POTASSIUM CHLORIDE. [Concomitant]
     Active Substance: POTASSIUM CHLORIDE
  4. CARVEDILOL. [Concomitant]
     Active Substance: CARVEDILOL
  5. LEVOFLOXACIN. [Concomitant]
     Active Substance: LEVOFLOXACIN
  6. ADCIRCA [Concomitant]
     Active Substance: TADALAFIL
  7. DIGOXIN. [Concomitant]
     Active Substance: DIGOXIN
  8. SPIRIVA [Concomitant]
     Active Substance: TIOTROPIUM BROMIDE MONOHYDRATE
  9. ASPIRIN                            /00002701/ [Concomitant]
     Active Substance: ASPIRIN
  10. ADVAIR HFA [Concomitant]
     Active Substance: FLUTICASONE PROPIONATE\SALMETEROL XINAFOATE
  11. PRILOSEC [Concomitant]
     Active Substance: OMEPRAZOLE MAGNESIUM
  12. LASIX [Concomitant]
     Active Substance: FUROSEMIDE
  13. VITAMIN C [Concomitant]
     Active Substance: ASCORBIC ACID
  14. MULTI VITAMIN [Concomitant]
     Active Substance: VITAMINS
  15. POTASSIUM [Concomitant]
     Active Substance: POTASSIUM

REACTIONS (1)
  - Death [Fatal]
